FAERS Safety Report 7276751-0 (Version None)
Quarter: 2011Q1

REPORT INFORMATION
  Report Type: 
  Country: None (occurrence: None)
  Receive Date: 20110206
  Receipt Date: 20110125
  Transmission Date: 20110831
  Serious: Yes (Other)
  Sender: FDA-Public Use
  Company Number: US-BAYER-2011-008493

PATIENT
  Sex: Female

DRUGS (3)
  1. ASPIRIN [Suspect]
  2. LEVAQUIN [Suspect]
  3. TETANUS VACCINE [Suspect]

REACTIONS (2)
  - HAEMORRHOIDS [None]
  - RECTAL HAEMORRHAGE [None]
